FAERS Safety Report 8935245 (Version 2)
Quarter: 2012Q4

REPORT INFORMATION
  Report Type: 
  Country: US (occurrence: US)
  Receive Date: 20121129
  Receipt Date: 20121225
  Transmission Date: 20130627
  Serious: No
  Sender: FDA-Public Use
  Company Number: US-ASTRAZENECA-2012SE86792

PATIENT
  Age: 51 Year
  Sex: Female
  Weight: 82.6 kg

DRUGS (8)
  1. NEXIUM [Suspect]
     Indication: GASTROOESOPHAGEAL REFLUX DISEASE
     Route: 048
  2. LISINOPRIL [Concomitant]
  3. DIABANASE [Concomitant]
  4. WELBUTRIN [Concomitant]
  5. MULTIVITAMIN [Concomitant]
  6. CALCIUM [Concomitant]
  7. ASA [Concomitant]
  8. BIRTH CONTROL [Concomitant]

REACTIONS (4)
  - Oesophageal pain [Unknown]
  - Abdominal discomfort [Unknown]
  - Flatulence [Unknown]
  - Drug ineffective [Unknown]
